FAERS Safety Report 11938827 (Version 1)
Quarter: 2016Q1

REPORT INFORMATION
  Report Type: Report from Study
  Country: US (occurrence: US)
  Receive Date: 20160122
  Receipt Date: 20160122
  Transmission Date: 20160526
  Serious: Yes (Death, Hospitalization)
  Sender: FDA-Public Use
  Company Number: US-ROCHE-ITM201410IM007336

PATIENT
  Age: 80 Year
  Sex: Male
  Weight: 71.7 kg

DRUGS (5)
  1. PIRFENIDONE [Suspect]
     Active Substance: PIRFENIDONE
     Indication: IDIOPATHIC PULMONARY FIBROSIS
     Route: 048
     Dates: start: 20140617
  2. PIRFENIDONE [Suspect]
     Active Substance: PIRFENIDONE
     Route: 048
     Dates: start: 20140909
  3. PIRFENIDONE [Suspect]
     Active Substance: PIRFENIDONE
     Route: 048
     Dates: end: 20141103
  4. PIRFENIDONE [Suspect]
     Active Substance: PIRFENIDONE
     Dosage: DOSE REDUCED FROM 9 DF/ DAY TO 3 DF/DAY
     Route: 048
     Dates: start: 20141030
  5. PIRFENIDONE [Suspect]
     Active Substance: PIRFENIDONE
     Route: 048
     Dates: start: 20141007

REACTIONS (3)
  - Pulmonary fibrosis [Fatal]
  - Diarrhoea [Not Recovered/Not Resolved]
  - Bladder disorder [Recovered/Resolved]

NARRATIVE: CASE EVENT DATE: 20141012
